FAERS Safety Report 10063283 (Version 3)
Quarter: 2014Q2

REPORT INFORMATION
  Report Type: Spontaneous
  Country: BR (occurrence: BR)
  Receive Date: 20140407
  Receipt Date: 20140410
  Transmission Date: 20141212
  Serious: Yes (Death)
  Sender: FDA-Public Use
  Company Number: BR-EISAI INC-E2020-07229-SPO-BR

PATIENT
  Age: 85 Year
  Sex: Female

DRUGS (2)
  1. ERANZ [Suspect]
     Indication: DEMENTIA ALZHEIMER^S TYPE
     Route: 048
     Dates: start: 20060527, end: 201001
  2. ERANZ [Suspect]
     Route: 048
     Dates: start: 201001

REACTIONS (3)
  - Aortic disorder [Fatal]
  - Insomnia [Recovered/Resolved]
  - Agitation [Recovered/Resolved]
